FAERS Safety Report 19268399 (Version 1)
Quarter: 2021Q2

REPORT INFORMATION
  Report Type: Spontaneous
  Country: US (occurrence: US)
  Receive Date: 20210517
  Receipt Date: 20210517
  Transmission Date: 20210717
  Serious: Yes (Hospitalization, Other)
  Sender: FDA-Public Use
  Company Number: US-B.I. PHARMACEUTICALS,INC./RIDGEFIELD-2021-BI-102633

PATIENT
  Age: 82 Year
  Sex: Male

DRUGS (1)
  1. OFEV [Suspect]
     Active Substance: NINTEDANIB
     Indication: IDIOPATHIC PULMONARY FIBROSIS
     Dosage: 150 MG TWICE A DAY
     Dates: start: 2016

REACTIONS (11)
  - Atrioventricular block [Recovered/Resolved]
  - Myocardial infarction [Recovered/Resolved]
  - Gallbladder disorder [Recovered/Resolved]
  - Asthenia [Recovering/Resolving]
  - Poor peripheral circulation [Not Recovered/Not Resolved]
  - Balance disorder [Unknown]
  - Pancreatitis [Recovered/Resolved]
  - Anaemia [Unknown]
  - Depression [Not Recovered/Not Resolved]
  - Fall [Recovered/Resolved]
  - Oxygen saturation abnormal [Not Recovered/Not Resolved]

NARRATIVE: CASE EVENT DATE: 2017
